FAERS Safety Report 7901283-3 (Version None)
Quarter: 2011Q4

REPORT INFORMATION
  Report Type: 
  Country: None (occurrence: None)
  Receive Date: 20111108
  Receipt Date: 20111102
  Transmission Date: 20120403
  Serious: Yes (Death)
  Sender: FDA-Public Use
  Company Number: PHEH2011US008748

PATIENT
  Sex: Female

DRUGS (5)
  1. ASPIRIN [Concomitant]
  2. GLEEVEC [Suspect]
     Dosage: 600 MG, DAILY
     Route: 048
     Dates: start: 20080417
  3. EVISTA [Concomitant]
  4. PROCHLORPERAZINE [Concomitant]
  5. CADUET [Concomitant]

REACTIONS (1)
  - DEATH [None]
